FAERS Safety Report 9221928 (Version 1)
Quarter: 2013Q1

REPORT INFORMATION
  Report Type: Spontaneous
  Country: US (occurrence: None)
  Receive Date: 20120907
  Receipt Date: 20120907
  Transmission Date: 20140127
  Serious: No
  Sender: FDA-Public Use
  Company Number: TH-2012-00338

PATIENT
  Sex: Male

DRUGS (2)
  1. EGRIFTA [Suspect]
     Indication: LIPODYSTROPHY ACQUIRED
     Dates: start: 201204
  2. CORTISONE ( CORTISONE ACETATE) [Concomitant]

REACTIONS (3)
  - Abdominal distension [None]
  - Injection site bruising [None]
  - Injection site pain [None]
